FAERS Safety Report 20335756 (Version 1)
Quarter: 2022Q1

REPORT INFORMATION
  Report Type: Spontaneous
  Country: US (occurrence: None)
  Receive Date: 20220113
  Receipt Date: 20220113
  Transmission Date: 20220424
  Serious: Yes (Other)
  Sender: FDA-Public Use
  Company Number: None

PATIENT
  Age: 65 Year
  Sex: Male
  Weight: 63 kg

DRUGS (8)
  1. PRASUGREL [Suspect]
     Active Substance: PRASUGREL
     Indication: Myocardial infarction
     Dosage: FREQUENCY : DAILY;?
     Route: 048
     Dates: start: 20211124, end: 20220110
  2. PRASUGREL [Suspect]
     Active Substance: PRASUGREL
     Indication: Vascular stent stenosis
  3. PRASUGREL [Suspect]
     Active Substance: PRASUGREL
     Indication: Surgical failure
  4. ENALAPRIL [Concomitant]
     Active Substance: ENALAPRIL
  5. omega-3 acidy ethyl esters [Concomitant]
  6. hearing aids user [Concomitant]
  7. MAGNESIUM [Concomitant]
     Active Substance: MAGNESIUM
  8. a-c carbamide [Concomitant]

REACTIONS (10)
  - Wrong technique in product usage process [None]
  - Chills [None]
  - Musculoskeletal chest pain [None]
  - Back pain [None]
  - Dizziness [None]
  - Feeling abnormal [None]
  - Respiration abnormal [None]
  - Headache [None]
  - Bed rest [None]
  - Blood pressure increased [None]

NARRATIVE: CASE EVENT DATE: 20220110
